FAERS Safety Report 5061335-5 (Version None)
Quarter: 2006Q3

REPORT INFORMATION
  Report Type: 
  Country: None (occurrence: None)
  Receive Date: 20060719
  Receipt Date: 20060719
  Transmission Date: 20061208
  Serious: Yes (Hospitalization)
  Sender: FDA-Public Use
  Company Number: None

PATIENT
  Sex: Male

DRUGS (2)
  1. LEVOFLOXACIN [Suspect]
     Indication: DIVERTICULUM
     Dosage: 500 MG   Q24  IV
     Route: 042
     Dates: start: 20060304, end: 20060306
  2. CEFTRIAXONE [Suspect]
     Indication: DIVERTICULUM
     Dosage: 1 GRAM   Q24  IV
     Route: 042
     Dates: start: 20060304, end: 20060310

REACTIONS (4)
  - ASTHENIA [None]
  - BLOOD POTASSIUM DECREASED [None]
  - BLOOD SODIUM DECREASED [None]
  - CLOSTRIDIUM DIFFICILE COLITIS [None]
